FAERS Safety Report 19093743 (Version 1)
Quarter: 2021Q2

REPORT INFORMATION
  Report Type: Spontaneous
  Country: US (occurrence: US)
  Receive Date: 20210405
  Receipt Date: 20210405
  Transmission Date: 20210717
  Serious: Yes (Hospitalization)
  Sender: FDA-Public Use
  Company Number: US-PFIZER INC-2021344722

PATIENT
  Age: 32 Year
  Sex: Female

DRUGS (7)
  1. RISPERIDONE. [Concomitant]
     Active Substance: RISPERIDONE
     Indication: MAJOR DEPRESSION
     Dosage: 0.25 MG (AT BEDTIME)
  2. VENLAFAXINE [Concomitant]
     Active Substance: VENLAFAXINE HYDROCHLORIDE
     Indication: MAJOR DEPRESSION
     Dosage: 187.5 MG
  3. CITALOPRAM [Concomitant]
     Active Substance: CITALOPRAM HYDROBROMIDE
     Indication: MAJOR DEPRESSION
     Dosage: UNK
  4. GUANFACINE. [Concomitant]
     Active Substance: GUANFACINE
     Indication: SPEECH DISORDER
     Dosage: 1 MG, 2X/DAY
  5. PANTOPRAZOLE [Suspect]
     Active Substance: PANTOPRAZOLE
     Indication: GASTROOESOPHAGEAL REFLUX DISEASE
     Dosage: 40 MG, 2X/DAY
  6. QUETIAPINE. [Concomitant]
     Active Substance: QUETIAPINE
     Indication: TIC
     Dosage: 12.5 MG (AT BED TIME)
  7. RISPERIDONE. [Concomitant]
     Active Substance: RISPERIDONE
     Dosage: 0.25 MG, 2X/DAY

REACTIONS (2)
  - Speech disorder [Recovered/Resolved]
  - Condition aggravated [Recovered/Resolved]
